FAERS Safety Report 14000410 (Version 1)
Quarter: 2017Q3

REPORT INFORMATION
  Report Type: Report from Study
  Country: UA (occurrence: UA)
  Receive Date: 20170922
  Receipt Date: 20170922
  Transmission Date: 20171128
  Serious: Yes (Hospitalization)
  Sender: FDA-Public Use
  Company Number: PHHY2017UA135521

PATIENT
  Age: 43 Year
  Sex: Male
  Weight: 89 kg

DRUGS (3)
  1. FOLIC ACID. [Concomitant]
     Active Substance: FOLIC ACID
     Indication: RHEUMATOID ARTHRITIS
     Route: 065
     Dates: start: 20150803, end: 20170419
  2. METYPRED ^ORION^ [Suspect]
     Active Substance: METHYLPREDNISOLONE
     Indication: RHEUMATOID ARTHRITIS
     Dosage: 8 MG, QD
     Route: 048
     Dates: start: 20150820, end: 20170418
  3. METHOTREXATE. [Suspect]
     Active Substance: METHOTREXATE
     Indication: RHEUMATOID ARTHRITIS
     Dosage: 20 MG, QW
     Route: 048

REACTIONS (6)
  - Speech disorder [Unknown]
  - Aphasia [Unknown]
  - Chronic sinusitis [Recovered/Resolved]
  - Encephalitis [Recovered/Resolved]
  - Salivary gland mucocoele [Unknown]
  - Encephalitis viral [Unknown]

NARRATIVE: CASE EVENT DATE: 20170324
